FAERS Safety Report 15960547 (Version 2)
Quarter: 2019Q1

REPORT INFORMATION
  Report Type: Report from Study
  Country: BR (occurrence: BR)
  Receive Date: 20190214
  Receipt Date: 20190310
  Transmission Date: 20190417
  Serious: Yes (Hospitalization, Disabling)
  Sender: FDA-Public Use
  Company Number: BR-UCBSA-2019005280

PATIENT
  Age: 78 Year
  Sex: Male
  Weight: 55 kg

DRUGS (6)
  1. LEVETIRACETAM. [Suspect]
     Active Substance: LEVETIRACETAM
     Indication: SEIZURE
     Dosage: 500 MG, 2X/DAY (BID)
     Route: 048
     Dates: start: 201804
  2. SIMVASTATIN. [Concomitant]
     Active Substance: SIMVASTATIN
     Indication: PRODUCT USED FOR UNKNOWN INDICATION
     Dosage: 40 MG, ONCE DAILY (QD) AT LUNCH
     Route: 048
     Dates: start: 201804
  3. VANNAIR [Concomitant]
     Active Substance: BUDESONIDE\FORMOTEROL FUMARATE DIHYDRATE
     Indication: RESPIRATORY FAILURE
     Dosage: 6/200 MCG 2X/DAY (BID)
     Dates: start: 201805
  4. CITALOPRAM [Concomitant]
     Active Substance: CITALOPRAM HYDROBROMIDE
     Indication: DEPRESSION
     Dosage: 20 MG, ONCE DAILY (QD) AT NIGHT
     Route: 048
     Dates: start: 201709
  5. GALANTAMINE. [Concomitant]
     Active Substance: GALANTAMINE
     Indication: MEMORY IMPAIRMENT
     Dosage: 8 MG, ONCE DAILY (QD)
     Route: 048
     Dates: start: 201812
  6. PROLOPA [Concomitant]
     Active Substance: BENSERAZIDE\LEVODOPA
     Indication: PARKINSON^S DISEASE
     Dosage: 200/50 MG  4X/DAY (QID)
     Route: 048
     Dates: start: 201709

REACTIONS (3)
  - Meningoencephalitis herpetic [Recovered/Resolved with Sequelae]
  - Weight decreased [Not Recovered/Not Resolved]
  - Bacteraemia [Recovered/Resolved]

NARRATIVE: CASE EVENT DATE: 201804
